FAERS Safety Report 18128084 (Version 1)
Quarter: 2020Q3

REPORT INFORMATION
  Report Type: Spontaneous
  Country: US (occurrence: US)
  Receive Date: 20200807
  Receipt Date: 20200807
  Transmission Date: 20201103
  Serious: Yes (Death)
  Sender: FDA-Public Use
  Company Number: None

PATIENT
  Age: 24 Year
  Sex: Female
  Weight: 139.71 kg

DRUGS (12)
  1. CLOZAPINE. [Concomitant]
     Active Substance: CLOZAPINE
  2. GABAPENTIN. [Concomitant]
     Active Substance: GABAPENTIN
  3. ATENOLOL. [Concomitant]
     Active Substance: ATENOLOL
  4. DOCINOATE [Concomitant]
  5. ENALAPRIL [Concomitant]
     Active Substance: ENALAPRIL
  6. BISCACODYL [Concomitant]
  7. BUPRENORPHINE NALOXONE [Concomitant]
     Active Substance: BUPRENORPHINE\NALOXONE
  8. DEPO?PROVERA [Suspect]
     Active Substance: MEDROXYPROGESTERONE ACETATE
     Indication: CONTRACEPTION
     Dosage: ?          OTHER FREQUENCY:EVERY 3 MONTHS;?
     Dates: end: 20200430
  9. MINTAGAPINE [Concomitant]
  10. SENNOSIDE [Concomitant]
     Active Substance: SENNOSIDES
  11. VONLAPAXIMEX [Concomitant]
  12. ERGOCALCIFENOL [Concomitant]

REACTIONS (4)
  - Cardio-respiratory arrest [None]
  - Unresponsive to stimuli [None]
  - Deep vein thrombosis [None]
  - Pulmonary embolism [None]

NARRATIVE: CASE EVENT DATE: 20200618
